FAERS Safety Report 4374556-1 (Version None)
Quarter: 2004Q2

REPORT INFORMATION
  Report Type: 
  Country: None (occurrence: None)
  Receive Date: 20040603
  Receipt Date: 20040518
  Transmission Date: 20050107
  Serious: Yes (Death)
  Sender: FDA-Public Use
  Company Number: 2004-DE-02977GD (0)

PATIENT
  Age: 54 Year
  Sex: Male

DRUGS (4)
  1. CYCLOPHOSPHAMIDE [Suspect]
     Indication: T-CELL LYMPHOMA
     Dosage: 750 MG/ME2 (, ON DAY 1 OF 8 CHEMOTHERAPY CYCLES),
  2. PREDNISONE TAB [Suspect]
     Indication: T-CELL LYMPHOMA
     Dosage: 100 MG (, ON DAY 1-5 OF 8 CHEMOTHERAPY CYCLES),
  3. DOXORUBICIN HCL [Suspect]
     Indication: T-CELL LYMPHOMA
     Dosage: 50 MG/ME2 (, ON DAY 1 OF 8 CHEMOTHERAPY CYCLES),
  4. VINCRISTINE [Suspect]
     Indication: T-CELL LYMPHOMA
     Dosage: 1.4 MG/ME2

REACTIONS (6)
  - ANGIOCENTRIC LYMPHOMA [None]
  - BRONCHOPULMONARY ASPERGILLOSIS [None]
  - LEUKAEMIA CUTIS [None]
  - LYMPHADENOPATHY [None]
  - MALIGNANT NEOPLASM PROGRESSION [None]
  - STEM CELL TRANSPLANT [None]
